FAERS Safety Report 4675276-6 (Version None)
Quarter: 2005Q2

REPORT INFORMATION
  Report Type: 
  Country: None (occurrence: None)
  Receive Date: 20050527
  Receipt Date: 20050516
  Transmission Date: 20051028
  Serious: Yes (Hospitalization)
  Sender: FDA-Public Use
  Company Number: US-JNJFOC-20050201192

PATIENT
  Sex: Female
  Weight: 64.86 kg

DRUGS (10)
  1. REMICADE [Suspect]
     Route: 042
  2. REMICADE [Suspect]
     Indication: CROHN'S DISEASE
     Dosage: WAS ON INFLIXIMAB APPROXIMATELY 1 YEAR
     Route: 042
  3. IMURAN [Concomitant]
  4. ESTRADIOL [Concomitant]
  5. LEXAPRO [Concomitant]
  6. CIPROFLOXACIN [Concomitant]
  7. MEGOXYPROGESTERONE [Concomitant]
  8. TUMS [Concomitant]
  9. WELLBUTRIN [Concomitant]
  10. PAIN KILLER [Concomitant]

REACTIONS (10)
  - ACIDOSIS [None]
  - ANAEMIA [None]
  - BLOOD MAGNESIUM DECREASED [None]
  - HYPOKALAEMIA [None]
  - HYPOPHOSPHATAEMIA [None]
  - NEPHROLITHIASIS [None]
  - PNEUMONIA [None]
  - RENAL FAILURE ACUTE [None]
  - URINARY TRACT INFECTION [None]
  - WEIGHT DECREASED [None]
